FAERS Safety Report 10150000 (Version 2)
Quarter: 2014Q2

REPORT INFORMATION
  Report Type: Spontaneous
  Country: US (occurrence: US)
  Receive Date: 20140502
  Receipt Date: 20140616
  Transmission Date: 20141212
  Serious: Yes (Hospitalization)
  Sender: FDA-Public Use
  Company Number: US-PFIZER INC-2014121641

PATIENT
  Age: 59 Year
  Sex: Male
  Weight: 110 kg

DRUGS (2)
  1. PIPERACILLIN/TAZOBACTAM [Suspect]
     Indication: LOCALISED INFECTION
     Dosage: EVERY 8 HOURS INFUSED AT RATE OF 100ML OVER 30MINUTES
     Route: 042
     Dates: start: 20140328, end: 20140417
  2. NORMAL SALINE [Suspect]
     Indication: LOCALISED INFECTION
     Dosage: UNK (0.9% NACL MINI-BAG PLUS I00ML, IV, INFUSED AT RATE OF 100ML OVER)
     Route: 042
     Dates: start: 20140328

REACTIONS (2)
  - Chest discomfort [Recovered/Resolved]
  - Chills [Recovered/Resolved]
